FAERS Safety Report 11148730 (Version 3)
Quarter: 2015Q3

REPORT INFORMATION
  Report Type: Spontaneous
  Country: IT (occurrence: IT)
  Receive Date: 20150529
  Receipt Date: 20150713
  Transmission Date: 20151125
  Serious: Yes (Hospitalization)
  Sender: FDA-Public Use
  Company Number: IT-PFIZER INC-2015181001

PATIENT
  Age: 63 Year
  Sex: Male

DRUGS (11)
  1. SPASMEX [Concomitant]
     Active Substance: TROSPIUM CHLORIDE
     Dosage: 3 DF, UNK
     Route: 048
  2. EN [Concomitant]
     Active Substance: DELORAZEPAM
     Route: 048
  3. RISPERDAL [Concomitant]
     Active Substance: RISPERIDONE
     Route: 048
  4. CARDIOASPIRIN [Suspect]
     Active Substance: ASPIRIN
     Route: 048
  5. FOLINA [Concomitant]
     Active Substance: FOLIC ACID
     Route: 048
  6. PROSTATIL [Concomitant]
     Route: 048
  7. LERCAPREL [Concomitant]
     Active Substance: ENALAPRIL MALEATE\LERCANIDIPINE HYDROCHLORIDE
     Dosage: 1 DF, UNK
     Route: 048
  8. NORMIX [Concomitant]
     Active Substance: RIFAXIMIN
     Route: 048
  9. NORVASC [Suspect]
     Active Substance: AMLODIPINE BESYLATE
     Route: 048
  10. ACTOS [Concomitant]
     Active Substance: PIOGLITAZONE HYDROCHLORIDE
     Dosage: 15 MG, UNK
     Route: 048
  11. PENTACOL [Concomitant]
     Active Substance: MESALAMINE
     Route: 048

REACTIONS (2)
  - Rectal haemorrhage [Not Recovered/Not Resolved]
  - Anaemia [Not Recovered/Not Resolved]

NARRATIVE: CASE EVENT DATE: 20150224
